FAERS Safety Report 5159141-6 (Version None)
Quarter: 2006Q4

REPORT INFORMATION
  Report Type: 
  Country: None (occurrence: None)
  Receive Date: 20061128
  Receipt Date: 20061117
  Transmission Date: 20070319
  Serious: Yes (Other)
  Sender: FDA-Public Use
  Company Number: GB-GILEAD-2006-0010708

PATIENT
  Age: 39 Year
  Sex: Female

DRUGS (2)
  1. TRUVADA [Suspect]
     Route: 048
     Dates: start: 20050916
  2. SUSTIVA [Suspect]
     Route: 048
     Dates: start: 20050916

REACTIONS (3)
  - ABORTION SPONTANEOUS [None]
  - DRUG EXPOSURE DURING PREGNANCY [None]
  - PREGNANCY [None]
